FAERS Safety Report 12525409 (Version 1)
Quarter: 2016Q3

REPORT INFORMATION
  Report Type: Spontaneous
  Country: None (occurrence: US)
  Receive Date: 20160704
  Receipt Date: 20160704
  Transmission Date: 20161109
  Serious: Yes (Life-Threatening, Hospitalization, Other)
  Sender: FDA-Public Use
  Company Number: US-PRESTIGE BRANDS -1054579

PATIENT
  Age: 49 Year
  Sex: Female

DRUGS (1)
  1. GOODYS [Suspect]
     Active Substance: ACETAMINOPHEN\ASPIRIN\CAFFEINE
     Indication: HEADACHE
     Route: 048
     Dates: start: 201602, end: 20160513

REACTIONS (7)
  - Loss of consciousness [Recovered/Resolved]
  - Life support [Recovered/Resolved]
  - Abdominal pain upper [Unknown]
  - Haematoma [Recovered/Resolved]
  - Brain operation [Recovered/Resolved]
  - Internal haemorrhage [Recovered/Resolved]
  - Abdominal discomfort [Unknown]

NARRATIVE: CASE EVENT DATE: 20160513
